FAERS Safety Report 6705177-0 (Version None)
Quarter: 2010Q2

REPORT INFORMATION
  Report Type: 
  Country: None (occurrence: None)
  Receive Date: 20100430
  Receipt Date: 20100420
  Transmission Date: 20101027
  Serious: Yes (Hospitalization)
  Sender: FDA-Public Use
  Company Number: US-ABBOTT-10P-163-0639927-00

PATIENT
  Sex: Female
  Weight: 80.358 kg

DRUGS (9)
  1. HUMIRA [Suspect]
     Indication: PSORIASIS
     Dates: start: 20071101, end: 20090901
  2. HUMIRA [Suspect]
     Dates: start: 20091001, end: 20091001
  3. NEXIUM [Concomitant]
     Indication: DRUG USE FOR UNKNOWN INDICATION
  4. TESSALON [Concomitant]
     Indication: DRUG USE FOR UNKNOWN INDICATION
  5. MOBIC [Concomitant]
     Indication: DRUG USE FOR UNKNOWN INDICATION
  6. ZYRTEC [Concomitant]
     Indication: DRUG USE FOR UNKNOWN INDICATION
  7. OLUX [Concomitant]
     Indication: PSORIASIS
  8. TRIAMCINOLONE [Concomitant]
     Indication: PSORIASIS
  9. DOVONEX [Concomitant]
     Indication: PSORIASIS

REACTIONS (10)
  - CHEST PAIN [None]
  - COCCIDIOIDOMYCOSIS [None]
  - COUGH [None]
  - GRANULOMATOUS PNEUMONITIS [None]
  - HEADACHE [None]
  - LARYNGITIS [None]
  - MALAISE [None]
  - PNEUMONIA [None]
  - PYREXIA [None]
  - URINARY TRACT INFECTION [None]
